FAERS Safety Report 4641295-9 (Version None)
Quarter: 2005Q2

REPORT INFORMATION
  Report Type: 
  Country: None (occurrence: None)
  Receive Date: 20050419
  Receipt Date: 20050408
  Transmission Date: 20051028
  Serious: Yes (Hospitalization)
  Sender: FDA-Public Use
  Company Number: 05P-008-0294038-01

PATIENT
  Age: 19 Year
  Sex: Female
  Weight: 43 kg

DRUGS (1)
  1. HUMIRA [Suspect]
     Indication: CROHN'S DISEASE
     Dosage: 40 MG, 1 IN 2 WK, SUBCUTANEOUS
     Route: 058
     Dates: start: 20040223

REACTIONS (5)
  - ANAL NEOPLASM [None]
  - ANAL STENOSIS [None]
  - CLOSTRIDIUM DIFFICILE TOXIN TEST POSITIVE [None]
  - DISEASE PROGRESSION [None]
  - GASTROENTERITIS [None]
